FAERS Safety Report 6284437-4 (Version None)
Quarter: 2009Q3

REPORT INFORMATION
  Report Type: 
  Country: None (occurrence: None)
  Receive Date: 20090727
  Receipt Date: 20090714
  Transmission Date: 20100115
  Serious: Yes (Death)
  Sender: FDA-Public Use
  Company Number: LB-SANOFI-SYNTHELABO-A01200907362

PATIENT
  Age: 5 Year
  Sex: Male

DRUGS (2)
  1. STILNOX [Suspect]
     Indication: DRUG USE FOR UNKNOWN INDICATION
     Dosage: 5 TO 20 TABS OF 10MG
     Route: 048
     Dates: start: 20090713, end: 20090713
  2. LEXOTANIL [Suspect]
     Indication: DRUG USE FOR UNKNOWN INDICATION
     Dosage: 5 TO 20 TABS
     Route: 048
     Dates: start: 20090713, end: 20090713

REACTIONS (3)
  - MULTIPLE DRUG OVERDOSE [None]
  - OFF LABEL USE [None]
  - VICTIM OF HOMICIDE [None]
